FAERS Safety Report 25700025 (Version 1)
Quarter: 2025Q3

REPORT INFORMATION
  Report Type: Spontaneous
  Country: US (occurrence: None)
  Receive Date: 20250818
  Receipt Date: 20250818
  Transmission Date: 20251021
  Serious: Yes (Life-Threatening, Hospitalization)
  Sender: FDA-CTU
  Company Number: None

PATIENT
  Age: 55 Year
  Sex: Male

DRUGS (4)
  1. METFORMIN [Suspect]
     Active Substance: METFORMIN HYDROCHLORIDE
  2. DAPAGLIFLOZIN [Suspect]
     Active Substance: DAPAGLIFLOZIN
  3. METFORMIN [Concomitant]
     Active Substance: METFORMIN HYDROCHLORIDE
  4. DAPAGLIFLOZIN [Concomitant]
     Active Substance: DAPAGLIFLOZIN

REACTIONS (9)
  - Treatment noncompliance [None]
  - Hypotension [None]
  - Hyperglycaemia [None]
  - Hyperkalaemia [None]
  - Metabolic acidosis [None]
  - Acute myocardial infarction [None]
  - Gastrointestinal haemorrhage [None]
  - Chronic kidney disease [None]
  - Haemodialysis [None]

NARRATIVE: CASE EVENT DATE: 20240912
